FAERS Safety Report 9007529 (Version 1)
Quarter: 2013Q1

REPORT INFORMATION
  Report Type: Spontaneous
  Country: US (occurrence: US)
  Receive Date: 20130111
  Receipt Date: 20130111
  Transmission Date: 20140127
  Serious: Yes (Disabling)
  Sender: FDA-Public Use
  Company Number: US-009507513-0901USA02172

PATIENT
  Age: 3 Year
  Sex: Female
  Weight: 20.87 kg

DRUGS (1)
  1. SINGULAIR [Suspect]
     Indication: MULTIPLE ALLERGIES
     Dosage: 1 DF, QD
     Route: 048

REACTIONS (3)
  - Abnormal behaviour [Unknown]
  - Crying [Unknown]
  - Emotional disorder [Unknown]
